FAERS Safety Report 17225856 (Version 1)
Quarter: 2020Q1

REPORT INFORMATION
  Report Type: Spontaneous
  Country: DE (occurrence: DE)
  Receive Date: 20200102
  Receipt Date: 20200102
  Transmission Date: 20200409
  Serious: Yes (Congenital Anomaly, Other)
  Sender: FDA-Public Use
  Company Number: DE-MYLANLABS-2019M1131666

PATIENT
  Age: 1 Day
  Sex: Female
  Weight: 3.46 kg

DRUGS (12)
  1. SALBUTAMOL [Concomitant]
     Active Substance: ALBUTEROL
     Indication: ASTHMA
     Dosage: VERY SELDOM, ONLY IF REQUIRED. PROBABLY EVERY 4 TO 5 WEEKS ONCE.
     Route: 064
  2. AMLODIPINE [Suspect]
     Active Substance: AMLODIPINE BESYLATE
     Indication: HYPERTENSION
     Dosage: 10 [MG/D ]
     Route: 064
  3. HCT DEXCEL [Suspect]
     Active Substance: HYDROCHLOROTHIAZIDE
     Indication: HYPERTENSION
     Dosage: 12.5 [MG/D (12.5-0-0) ]
     Route: 064
     Dates: start: 20170922, end: 20180626
  4. CROMOGLICATE SODIUM [Concomitant]
     Active Substance: CROMOLYN SODIUM
     Indication: MITE ALLERGY
     Dosage: ONLY IF REQUIRED
     Route: 064
  5. CITALOPRAM [Suspect]
     Active Substance: CITALOPRAM HYDROBROMIDE
     Indication: DEPRESSION
     Dosage: 20 [MG/D (20-0-0) ]
     Route: 064
     Dates: start: 20170922, end: 20180626
  6. MOMETASONE FUROATE. [Concomitant]
     Active Substance: MOMETASONE FUROATE
     Indication: NEURODERMATITIS
     Dosage: ONTO VERY SMALL AREA
     Route: 064
  7. VIGANTOLETTEN [Concomitant]
     Active Substance: CHOLECALCIFEROL
     Indication: VITAMIN D DEFICIENCY
     Dosage: 1000 [I.E./D}
     Route: 064
     Dates: start: 20170922, end: 20180626
  8. FLUTICASONE PROPIONATE W/SALMETEROL XINAFOATE [Concomitant]
     Active Substance: FLUTICASONE PROPIONATE\SALMETEROL XINAFOATE
     Indication: ASTHMA
     Dosage: UNK
     Route: 064
     Dates: start: 20170922, end: 20180626
  9. NIFEDIPINE. [Suspect]
     Active Substance: NIFEDIPINE
     Indication: HYPERTENSION
     Dosage: 40 MILLIGRAM, QD(20-0-20)
     Route: 064
  10. L-THYROXIN                         /00068002/ [Concomitant]
     Active Substance: LEVOTHYROXINE SODIUM
     Indication: HYPOTHYROIDISM
     Dosage: 100 [?G/D (BIS 50 ?G/D) ]
     Route: 064
     Dates: start: 20170922, end: 20180626
  11. METOHEXAL                          /00376902/ [Suspect]
     Active Substance: METOPROLOL SUCCINATE
     Indication: HYPERTENSION
     Dosage: 142.5 [MG/D (95-0-47.5)
     Route: 064
     Dates: start: 20170922, end: 20180626
  12. VIANI [Concomitant]
     Active Substance: FLUTICASONE PROPIONATE\SALMETEROL XINAFOATE
     Indication: ASTHMA
     Dosage: UNK
     Route: 064
     Dates: start: 20170922, end: 20180626

REACTIONS (3)
  - Arrhythmia neonatal [Recovered/Resolved]
  - Foetal exposure during pregnancy [Recovered/Resolved]
  - Atrial septal defect [Not Recovered/Not Resolved]

NARRATIVE: CASE EVENT DATE: 20180626
